FAERS Safety Report 20756538 (Version 1)
Quarter: 2022Q2

REPORT INFORMATION
  Report Type: Spontaneous
  Country: None (occurrence: A1)
  Receive Date: 20220427
  Receipt Date: 20220427
  Transmission Date: 20220721
  Serious: No
  Sender: FDA-Public Use
  Company Number: A1-Avion Pharmaceuticals, LLC-2128189

PATIENT
  Age: 37 Year
  Sex: Female

DRUGS (3)
  1. MEFENAMIC ACID [Suspect]
     Active Substance: MEFENAMIC ACID
     Indication: Dysmenorrhoea
     Route: 065
  2. DICLOFENAC [Suspect]
     Active Substance: DICLOFENAC
     Route: 065
  3. ACETAMINOPHEN\IBUPROFEN [Suspect]
     Active Substance: ACETAMINOPHEN\IBUPROFEN
     Route: 065

REACTIONS (3)
  - Renal ischaemia [Recovered/Resolved]
  - Abdominal pain [Unknown]
  - Flank pain [Unknown]
